FAERS Safety Report 16792398 (Version 3)
Quarter: 2019Q4

REPORT INFORMATION
  Report Type: Spontaneous
  Country: JP (occurrence: JP)
  Receive Date: 20190910
  Receipt Date: 20191002
  Transmission Date: 20200122
  Serious: Yes (Other)
  Sender: FDA-Public Use
  Company Number: JP-GLAXOSMITHKLINE-JP2019JPN161976

PATIENT
  Sex: Male

DRUGS (4)
  1. ROZEREM [Concomitant]
     Active Substance: RAMELTEON
     Dosage: UNK
  2. SILODOSIN OD [Concomitant]
     Dosage: UNK
  3. AVOLVE [Concomitant]
     Active Substance: DUTASTERIDE
     Dosage: UNK
  4. TRELEGY ELLIPTA [Suspect]
     Active Substance: FLUTICASONE FUROATE\UMECLIDINIUM BROMIDE\VILANTEROL TRIFENATATE
     Indication: CHRONIC OBSTRUCTIVE PULMONARY DISEASE
     Dosage: 100 ?G, QD, MORNING
     Route: 055

REACTIONS (3)
  - Contraindication to medical treatment [Unknown]
  - Urinary retention [Recovered/Resolved]
  - Off label use [Unknown]
